FAERS Safety Report 7760825-1 (Version None)
Quarter: 2011Q3

REPORT INFORMATION
  Report Type: 
  Country: None (occurrence: None)
  Receive Date: 20110919
  Receipt Date: 20110915
  Transmission Date: 20111222
  Serious: Yes (Death, Hospitalization, Other)
  Sender: FDA-Public Use
  Company Number: SE-ABBOTT-11P-150-0845277-00

PATIENT
  Sex: Male
  Weight: 80 kg

DRUGS (8)
  1. RAMIPRIL [Concomitant]
     Indication: HYPERTENSION
     Dates: start: 20080801
  2. ZEMPLAR [Suspect]
     Indication: RENAL FAILURE CHRONIC
     Dosage: 2 MICROGRAMS DAILY
     Route: 048
     Dates: start: 20110622, end: 20110729
  3. EPREX [Concomitant]
     Indication: ANAEMIA
     Dosage: 4000 UNITS/LITER PER WEEK
     Dates: start: 20110203, end: 20110701
  4. FUROSEMIDE [Concomitant]
     Dates: start: 20110726
  5. AMLODIPINE [Concomitant]
     Indication: HYPERTENSION
     Dates: start: 20101223, end: 20110701
  6. FUROSEMIDE [Concomitant]
     Indication: OEDEMA
     Dates: start: 20100701, end: 20110726
  7. CALCIUM CARBONATE [Concomitant]
     Indication: HYPERPARATHYROIDISM SECONDARY
     Dates: start: 20110622
  8. BISOPROLOL FUMARATE [Concomitant]
     Indication: CARDIAC FAILURE CONGESTIVE
     Dates: start: 20110107, end: 20110701

REACTIONS (9)
  - CHEST PAIN [None]
  - HYPOTENSION [None]
  - CARDIOVASCULAR DISORDER [None]
  - ANURIA [None]
  - DYSPNOEA [None]
  - ACUTE MYOCARDIAL INFARCTION [None]
  - GENERAL PHYSICAL HEALTH DETERIORATION [None]
  - LEFT VENTRICULAR FAILURE [None]
  - RENAL FAILURE CHRONIC [None]
